FAERS Safety Report 8013776-1 (Version None)
Quarter: 2011Q4

REPORT INFORMATION
  Report Type: 
  Country: None (occurrence: None)
  Receive Date: 20111229
  Receipt Date: 20111228
  Transmission Date: 20120403
  Serious: Yes (Life-Threatening, Hospitalization, Other)
  Sender: FDA-Public Use
  Company Number: JP-PFIZER INC-2011280230

PATIENT
  Age: 92 Year
  Sex: Male
  Weight: 48 kg

DRUGS (13)
  1. ARGAMATE [Concomitant]
     Indication: HYPERKALAEMIA
     Dosage: 25 G, 3X/DAY
     Route: 048
     Dates: start: 20100208
  2. ASPIRIN [Concomitant]
     Indication: THROMBOSIS PROPHYLAXIS
     Dosage: 100 MG, 1X/DAY
     Route: 048
     Dates: start: 20050609
  3. ENALAPRIL MALEATE [Concomitant]
     Indication: HYPERTENSION
     Dosage: 5 MG, 1X/DAY
     Route: 048
     Dates: start: 20050101
  4. LANIRAPID [Concomitant]
     Dosage: 0.1 MG, 1X/DAY
     Route: 048
     Dates: start: 20050101
  5. LENDORMIN [Concomitant]
     Indication: INSOMNIA
     Dosage: 0.25 MG, 1X/DAY
     Route: 048
     Dates: start: 20100420, end: 20111114
  6. LYRICA [Suspect]
     Indication: POST HERPETIC NEURALGIA
     Dosage: 75 MG, 3X/DAY
     Route: 048
     Dates: start: 20110707, end: 20111102
  7. MAGMITT [Concomitant]
     Indication: CONSTIPATION
     Dosage: 660 MG, 3X/DAY
     Route: 048
     Dates: start: 20080731
  8. MUCOSTA [Concomitant]
     Indication: GASTRITIS
     Dosage: 100 MG, 3X/DAY
     Route: 048
     Dates: start: 20100107
  9. FAMOTIDINE [Concomitant]
     Indication: GASTRITIS
     Dosage: 10 MG, 2X/DAY
     Route: 048
     Dates: start: 20091105
  10. SENNARIDE [Concomitant]
     Indication: CONSTIPATION
     Dosage: 12 MG, 1X/DAY
     Route: 048
     Dates: start: 20110420, end: 20111114
  11. AMLODIPINE [Concomitant]
     Indication: HYPERTENSION
     Dosage: 2.5 MG, 1X/DAY
     Route: 048
     Dates: start: 20070329
  12. FUROSEMIDE [Concomitant]
     Indication: CARDIAC FAILURE
     Dosage: 10 MG, 1X/DAY
     Route: 048
     Dates: start: 20100829
  13. MOTILIUM [Concomitant]
     Indication: GASTRITIS
     Dosage: 10 MG, 3X/DAY
     Route: 048
     Dates: start: 20110428, end: 20111102

REACTIONS (7)
  - TREMOR [None]
  - C-REACTIVE PROTEIN INCREASED [None]
  - PROTEIN URINE [None]
  - DRUG LEVEL INCREASED [None]
  - BLOOD SODIUM INCREASED [None]
  - RENAL IMPAIRMENT [None]
  - PYREXIA [None]
